FAERS Safety Report 25754580 (Version 1)
Quarter: 2025Q3

REPORT INFORMATION
  Report Type: Spontaneous
  Country: EU (occurrence: EU)
  Receive Date: 20250903
  Receipt Date: 20250903
  Transmission Date: 20251020
  Serious: No
  Sender: ALKEM
  Company Number: None

PATIENT
  Age: 50 Year
  Sex: Female
  Weight: 58 kg

DRUGS (5)
  1. PREGABALIN [Suspect]
     Active Substance: PREGABALIN
     Indication: Depression
     Route: 048
  2. FLUSPIRILENE [Suspect]
     Active Substance: FLUSPIRILENE
     Indication: Depression
     Route: 065
  3. HALOPERIDOL [Suspect]
     Active Substance: HALOPERIDOL
     Indication: Depression
     Route: 048
  4. LITHIUM [Suspect]
     Active Substance: LITHIUM
     Indication: Depression
     Route: 048
  5. TAVOR (LORAZEPAM) [Suspect]
     Active Substance: LORAZEPAM
     Indication: Depression
     Route: 048

REACTIONS (5)
  - Nervousness [Recovered/Resolved with Sequelae]
  - Apathy [Recovered/Resolved with Sequelae]
  - Sleep disorder [Recovered/Resolved with Sequelae]
  - Memory impairment [Recovered/Resolved with Sequelae]
  - Dry mouth [Recovered/Resolved with Sequelae]

NARRATIVE: CASE EVENT DATE: 20210712
